FAERS Safety Report 7039828-0 (Version None)
Quarter: 2010Q4

REPORT INFORMATION
  Report Type: 
  Country: None (occurrence: None)
  Receive Date: 20101012
  Receipt Date: 20101007
  Transmission Date: 20110411
  Serious: Yes (Life-Threatening, Hospitalization, Other)
  Sender: FDA-Public Use
  Company Number: FR-BRISTOL-MYERS SQUIBB COMPANY-15324734

PATIENT
  Age: 44 Year
  Sex: Male

DRUGS (10)
  1. BICNU PWDR FOR INJ [Suspect]
     Indication: IMMUNOBLASTIC LYMPHOMA
     Route: 042
     Dates: start: 20100819
  2. ETOPOPHOS PRESERVATIVE FREE [Suspect]
     Dosage: INTO 2.ALSO RECEVIED ON 20-AUG-2010, 21-AUG-2010, AND 22-AUG-2010.
     Dates: start: 20100819
  3. CYCLOPHOSPHAMIDE [Suspect]
  4. VINCRISTINE SULFATE [Suspect]
  5. DOXORUBICIN HCL [Suspect]
  6. ALKERAN [Suspect]
     Dates: start: 20100823
  7. ARACYTINE [Suspect]
     Dosage: INTO 2 ALSO RECEVIED ON 20-AUG-2010, 21-AUG-2010, AND 22-AUG-2010.
     Dates: start: 20100819
  8. EMEND [Concomitant]
     Dosage: ALSO RECEVIED ON 20-AUG-2010, 21-AUG-2010, 23AUG2010 AND 22-AUG-2010.
     Dates: start: 20100819
  9. ZOFRAN [Concomitant]
     Dosage: ALSO RECEVIED ON 20-AUG-2010, 21-AUG-2010, AND 22-AUG-2010.
     Dates: start: 20100819
  10. SODIC HEPARIN [Concomitant]
     Dosage: ALSO RECEVIED ON 20-AUG-2010, 21-AUG-2010,23AUG2010 AND 22-AUG-2010.
     Dates: start: 20100819

REACTIONS (4)
  - FEBRILE NEUTROPENIA [None]
  - INTERSTITIAL LUNG DISEASE [None]
  - RENAL IMPAIRMENT [None]
  - RESPIRATORY FAILURE [None]
